FAERS Safety Report 13661257 (Version 1)
Quarter: 2017Q2

REPORT INFORMATION
  Report Type: Report from Study
  Country: US (occurrence: US)
  Receive Date: 20170616
  Receipt Date: 20170616
  Transmission Date: 20170830
  Serious: No
  Sender: FDA-Public Use
  Company Number: US-US WORLDMEDS, LLC-USW201702-000327

PATIENT
  Age: 77 Year
  Sex: Female
  Weight: 81.19 kg

DRUGS (8)
  1. APOKYN [Suspect]
     Active Substance: APOMORPHINE HYDROCHLORIDE
     Indication: PARKINSON^S DISEASE
     Route: 058
     Dates: start: 20170217
  2. TIGAN [Concomitant]
     Active Substance: TRIMETHOBENZAMIDE HYDROCHLORIDE
     Indication: NAUSEA
  3. LATANOPROST. [Concomitant]
     Active Substance: LATANOPROST
     Indication: GLAUCOMA
  4. SINEMET [Concomitant]
     Active Substance: CARBIDOPA\LEVODOPA
     Indication: PARKINSON^S DISEASE
  5. ASA [Concomitant]
     Active Substance: ASPIRIN
  6. SINEMET [Concomitant]
     Active Substance: CARBIDOPA\LEVODOPA
  7. LEXIPRO [Concomitant]
     Indication: ANXIETY
  8. TIMOLOL MALAEATE [Concomitant]

REACTIONS (1)
  - Somnolence [Recovered/Resolved]

NARRATIVE: CASE EVENT DATE: 20170222
